FAERS Safety Report 7312669-2 (Version None)
Quarter: 2011Q1

REPORT INFORMATION
  Report Type: 
  Country: None (occurrence: None)
  Receive Date: 20110224
  Receipt Date: 20110107
  Transmission Date: 20110831
  Serious: No
  Sender: FDA-Public Use
  Company Number: US-ASTRAZENECA-2010SE51961

PATIENT
  Age: 77 Year
  Sex: Female

DRUGS (3)
  1. VIMOVO [Suspect]
     Indication: OSTEOARTHRITIS
     Dosage: 500 MG/20 MG
     Route: 048
     Dates: start: 20101026, end: 20101027
  2. BENICAR [Concomitant]
     Indication: HYPERTENSION
  3. VIMOVO [Suspect]
     Indication: SPONDYLITIS
     Dosage: 500 MG/20 MG
     Route: 048
     Dates: start: 20101026, end: 20101027

REACTIONS (7)
  - HAEMATOCHEZIA [None]
  - MEDICATION RESIDUE [None]
  - ABDOMINAL DISCOMFORT [None]
  - BURNING SENSATION MUCOSAL [None]
  - BLINDNESS TRANSIENT [None]
  - HAEMOPTYSIS [None]
  - WRONG TECHNIQUE IN DRUG USAGE PROCESS [None]
